FAERS Safety Report 15821221 (Version 1)
Quarter: 2019Q1

REPORT INFORMATION
  Report Type: Spontaneous
  Country: US (occurrence: US)
  Receive Date: 20190112
  Receipt Date: 20190112
  Transmission Date: 20190417
  Serious: Yes (Other)
  Sender: FDA-Public Use
  Company Number: None

PATIENT
  Age: 75 Year
  Sex: Female
  Weight: 58.5 kg

DRUGS (6)
  1. ROXICODONE [Suspect]
     Active Substance: OXYCODONE HYDROCHLORIDE
     Indication: PROCEDURAL PAIN
     Dosage: ?          QUANTITY:120 TABLET(S);OTHER FREQUENCY:EVERY THREE HOURS;?
     Route: 048
     Dates: start: 20181117, end: 20181130
  2. OXYBUTIN [Concomitant]
     Active Substance: OXYBUTYNIN
  3. ONE -A-DAY VITAMIN [Concomitant]
  4. FISH OIL [Concomitant]
     Active Substance: FISH OIL
  5. CALCIUM [Concomitant]
     Active Substance: CALCIUM
  6. MAGNESIUM [Concomitant]
     Active Substance: MAGNESIUM

REACTIONS (2)
  - Neuritis [None]
  - Neuralgia [None]

NARRATIVE: CASE EVENT DATE: 20181117
